FAERS Safety Report 6734097-0 (Version None)
Quarter: 2010Q2

REPORT INFORMATION
  Report Type: 
  Country: None (occurrence: None)
  Receive Date: 20100520
  Receipt Date: 20100511
  Transmission Date: 20101027
  Serious: Yes (Other)
  Sender: FDA-Public Use
  Company Number: JP-MERCK-1004USA04799

PATIENT
  Age: 72 Year
  Sex: Female
  Weight: 62 kg

DRUGS (5)
  1. JANUVIA [Suspect]
     Indication: HYPERGLYCAEMIA
     Route: 048
     Dates: start: 20100107, end: 20100428
  2. ASPIRIN [Concomitant]
     Route: 048
     Dates: start: 20090114
  3. BOFU-TSUSHO-SAN [Concomitant]
     Indication: CONSTIPATION
     Route: 048
     Dates: start: 20091104
  4. AMARYL [Concomitant]
     Indication: HYPERGLYCAEMIA
     Route: 048
     Dates: start: 20091209
  5. ZOCOR [Concomitant]
     Indication: HYPERLIPIDAEMIA
     Route: 048
     Dates: start: 20090114

REACTIONS (1)
  - HEPATIC FUNCTION ABNORMAL [None]
